FAERS Safety Report 9684882 (Version 2)
Quarter: 2016Q1

REPORT INFORMATION
  Report Type: Report from Study
  Country: US (occurrence: US)
  Receive Date: 20131112
  Receipt Date: 20160126
  Transmission Date: 20160526
  Serious: Yes (Other)
  Sender: FDA-Public Use
  Company Number: US-AMGEN-USASP2013079579

PATIENT
  Age: 56 Year
  Sex: Female

DRUGS (1)
  1. ENBREL [Suspect]
     Active Substance: ETANERCEPT
     Indication: RHEUMATOID ARTHRITIS
     Dosage: 50 MG, QWK
     Route: 065
     Dates: start: 20050101

REACTIONS (14)
  - Disability [Not Recovered/Not Resolved]
  - Injection site reaction [Unknown]
  - Diabetes mellitus [Not Recovered/Not Resolved]
  - Gastrointestinal disorder [Unknown]
  - Inappropriate schedule of drug administration [Unknown]
  - Injection site pain [Recovered/Resolved]
  - Limb operation [Unknown]
  - Localised infection [Unknown]
  - Elbow operation [Unknown]
  - Rheumatoid nodule [Unknown]
  - Arthralgia [Not Recovered/Not Resolved]
  - Limb reconstructive surgery [Unknown]
  - Fibromyalgia [Unknown]
  - Injection site discomfort [Unknown]

NARRATIVE: CASE EVENT DATE: 200804
